FAERS Safety Report 5104506-1 (Version None)
Quarter: 2006Q3

REPORT INFORMATION
  Report Type: 
  Country: None (occurrence: None)
  Receive Date: 20060911
  Receipt Date: 20060821
  Transmission Date: 20061208
  Serious: Yes (Life-Threatening, Hospitalization, Other)
  Sender: FDA-Public Use
  Company Number: PL200608005178

PATIENT
  Age: 32 Year
  Sex: Female

DRUGS (1)
  1. DROTRECOGIN ALFA (ACTIVATED) (DROTRECOGIN ALFA (ACTIVATED)) [Suspect]
     Indication: SEPTIC SHOCK
     Dosage: 24, EVERY HOUR, INTRAVENOUS
     Route: 042

REACTIONS (9)
  - ANAEMIA [None]
  - CAESAREAN SECTION [None]
  - COAGULOPATHY [None]
  - DRUG EXPOSURE DURING PREGNANCY [None]
  - HAEMORRHAGE [None]
  - HYSTERECTOMY [None]
  - MATERNAL CONDITION AFFECTING FOETUS [None]
  - MULTI-ORGAN FAILURE [None]
  - PREMATURE LABOUR [None]
